FAERS Safety Report 8241665-6 (Version None)
Quarter: 2012Q1

REPORT INFORMATION
  Report Type: 
  Country: None (occurrence: None)
  Receive Date: 20120328
  Receipt Date: 20120321
  Transmission Date: 20120608
  Serious: Yes (Hospitalization)
  Sender: FDA-Public Use
  Company Number: JP-GILEAD-2010-0034455

PATIENT
  Sex: Male

DRUGS (4)
  1. TRUVADA [Suspect]
     Indication: HIV INFECTION
     Route: 048
     Dates: start: 20101122, end: 20101203
  2. TRUVADA [Suspect]
     Route: 048
     Dates: start: 20101122, end: 20101203
  3. NORVIR [Concomitant]
     Indication: HIV INFECTION
     Dosage: UNK
     Dates: start: 20101122, end: 20101203
  4. REYATAZ [Concomitant]
     Indication: HIV INFECTION
     Dosage: UNK
     Dates: start: 20101122, end: 20101203

REACTIONS (3)
  - RENAL IMPAIRMENT [None]
  - HAEMODIALYSIS [None]
  - OVERDOSE [None]
